FAERS Safety Report 20485517 (Version 1)
Quarter: 2022Q1

REPORT INFORMATION
  Report Type: Spontaneous
  Country: US (occurrence: None)
  Receive Date: 20220217
  Receipt Date: 20220217
  Transmission Date: 20220423
  Serious: No
  Sender: FDA-Public Use
  Company Number: None

PATIENT
  Sex: Male

DRUGS (16)
  1. LETAIRIS [Suspect]
     Active Substance: AMBRISENTAN
     Indication: Pulmonary hypertension
     Dosage: FREQUENCY : DAILY;?
     Route: 048
  2. ATENOLOL [Concomitant]
     Active Substance: ATENOLOL
  3. CLARITIN-D 12 HOUR [Concomitant]
     Active Substance: LORATADINE\PSEUDOEPHEDRINE SULFATE
  4. SULFAMETHOXAZOLE/TRIMETHO [Concomitant]
  5. LINZESS [Concomitant]
     Active Substance: LINACLOTIDE
  6. BENADRYL ALLERGY ULTRATAB [Concomitant]
     Active Substance: DIPHENHYDRAMINE HYDROCHLORIDE
  7. ADEMPAS [Concomitant]
     Active Substance: RIOCIGUAT
  8. LISINOPRIL [Concomitant]
     Active Substance: LISINOPRIL
  9. FOLIC ACID [Concomitant]
     Active Substance: FOLIC ACID
  10. NORTRIPTYLINE HYDROCHL [Concomitant]
  11. ALEVE [Concomitant]
     Active Substance: NAPROXEN SODIUM
  12. DICYCLOMINE HYDROCHLORIDE [Concomitant]
     Active Substance: DICYCLOMINE HYDROCHLORIDE
  13. HYDROCODONE\IBUPROFEN [Concomitant]
     Active Substance: HYDROCODONE\IBUPROFEN
  14. WARFARIN SODIUM [Concomitant]
     Active Substance: WARFARIN SODIUM
  15. HYDROXYUREA [Concomitant]
     Active Substance: HYDROXYUREA
  16. FUROSEMIDE [Concomitant]
     Active Substance: FUROSEMIDE

REACTIONS (4)
  - Therapy cessation [None]
  - Abdominal pain upper [None]
  - Treatment noncompliance [None]
  - Gastric disorder [None]
